FAERS Safety Report 9269217 (Version 1)
Quarter: 2013Q2

REPORT INFORMATION
  Report Type: Spontaneous
  Country: US (occurrence: US)
  Receive Date: 20130503
  Receipt Date: 20130503
  Transmission Date: 20140414
  Serious: Yes (Other)
  Sender: FDA-Public Use
  Company Number: US-PFIZER INC-2013135481

PATIENT
  Age: 28 Year
  Sex: Female

DRUGS (6)
  1. EFFEXOR XR [Suspect]
     Indication: ANXIETY DISORDER
     Dosage: 225 MG, UNK
     Route: 048
     Dates: start: 200810, end: 200810
  2. EFFEXOR XR [Suspect]
     Dosage: 300 MG, UNK
     Route: 048
     Dates: start: 200810
  3. EFFEXOR XR [Suspect]
     Dosage: 225 MG, UNK
     Route: 048
  4. EFFEXOR XR [Suspect]
     Dosage: 187.25 MG, UNK
     Route: 048
  5. EFFEXOR XR [Suspect]
     Dosage: 112.5 MG, UNK
     Route: 048
  6. PRENATAL VITAMINS [Concomitant]
     Dosage: UNK

REACTIONS (7)
  - Thinking abnormal [Unknown]
  - Drug ineffective [Unknown]
  - Obsessive thoughts [Unknown]
  - Obsessive-compulsive disorder [Unknown]
  - Malaise [Unknown]
  - Insomnia [Unknown]
  - Disturbance in attention [Unknown]
